FAERS Safety Report 7361177-1 (Version None)
Quarter: 2011Q1

REPORT INFORMATION
  Report Type: 
  Country: None (occurrence: None)
  Receive Date: 20110318
  Receipt Date: 20110303
  Transmission Date: 20110831
  Serious: Yes (Other)
  Sender: FDA-Public Use
  Company Number: PHHY2010MX38523

PATIENT
  Sex: Female

DRUGS (8)
  1. ZOMETA [Suspect]
     Dosage: 4 MG/5 ML PER YEAR
  2. RADIOTHERAPY [Concomitant]
  3. TAFIROL [Concomitant]
  4. ZOMETA [Suspect]
     Dosage: 4 MG/5 ML PER 15 DAYS
  5. ZOMETA [Suspect]
     Dosage: 4 MG/5 ML PER MONTH
  6. ZOMETA [Suspect]
     Dosage: 4 MG/5 ML PER 6 MONTHS
  7. ZOMETA [Suspect]
     Indication: CERVIX CARCINOMA
     Dosage: 4 MG/5 ML PER 8 DAYS
     Route: 065
     Dates: start: 20040715
  8. TRADOL [Concomitant]

REACTIONS (7)
  - FALL [None]
  - PELVIC FRACTURE [None]
  - CONTUSION [None]
  - HEAD INJURY [None]
  - FRACTURED COCCYX [None]
  - BONE PAIN [None]
  - GAIT DISTURBANCE [None]
